FAERS Safety Report 7727026-4 (Version None)
Quarter: 2011Q3

REPORT INFORMATION
  Report Type: 
  Country: None (occurrence: None)
  Receive Date: 20110902
  Receipt Date: 20110823
  Transmission Date: 20111222
  Serious: No
  Sender: FDA-Public Use
  Company Number: US-B.I. PHARMACEUTICALS,INC./RIDGEFIELD-2011-BP-20674BP

PATIENT
  Sex: Male

DRUGS (2)
  1. LEVOXYL [Concomitant]
     Indication: HYPOTHYROIDISM
  2. AGGRENOX [Suspect]
     Indication: CEREBROVASCULAR ACCIDENT PROPHYLAXIS
     Route: 048
     Dates: start: 20110815

REACTIONS (1)
  - PAIN IN EXTREMITY [None]
